FAERS Safety Report 5963669-6 (Version None)
Quarter: 2008Q4

REPORT INFORMATION
  Report Type: 
  Country: None (occurrence: None)
  Receive Date: 20081124
  Receipt Date: 20081114
  Transmission Date: 20090506
  Serious: Yes (Other)
  Sender: FDA-Public Use
  Company Number: US-ELI_LILLY_AND_COMPANY-US200811004566

PATIENT
  Sex: Male
  Weight: 89.796 kg

DRUGS (9)
  1. BYETTA [Suspect]
     Indication: DIABETES MELLITUS
     Dosage: 5 UG, UNK
     Route: 058
     Dates: start: 20050101, end: 20050101
  2. BYETTA [Suspect]
     Dosage: 10 UG, 2/D
     Route: 058
     Dates: start: 20050101, end: 20081031
  3. COZAAR [Concomitant]
     Dosage: 25 MG, UNK
  4. PREVACID [Concomitant]
  5. METFORMIN HCL [Concomitant]
     Indication: DIABETES MELLITUS
  6. CRESTOR [Concomitant]
  7. GLUCOSAMINE [Concomitant]
     Indication: ARTHRITIS
  8. ASPIRIN [Concomitant]
  9. CENTRUM SILVER [Concomitant]

REACTIONS (7)
  - ABDOMINAL PAIN [None]
  - ASTHENIA [None]
  - MALAISE [None]
  - NAUSEA [None]
  - PANCREATIC CYST [None]
  - PANCREATITIS [None]
  - WEIGHT DECREASED [None]
